FAERS Safety Report 7929219-X (Version None)
Quarter: 2011Q4

REPORT INFORMATION
  Report Type: 
  Country: None (occurrence: None)
  Receive Date: 20111121
  Receipt Date: 20111110
  Transmission Date: 20120403
  Serious: Yes (Other)
  Sender: FDA-Public Use
  Company Number: FR-BRISTOL-MYERS SQUIBB COMPANY-16229361

PATIENT
  Age: 38 Year
  Sex: Female

DRUGS (3)
  1. NORVIR [Suspect]
  2. REYATAZ [Suspect]
  3. TRUVADA [Suspect]

REACTIONS (2)
  - ABORTION INDUCED [None]
  - PREGNANCY [None]
